FAERS Safety Report 23448775 (Version 2)
Quarter: 2024Q1

REPORT INFORMATION
  Report Type: Report from Study
  Country: CA (occurrence: CA)
  Receive Date: 20240127
  Receipt Date: 20240131
  Transmission Date: 20240410
  Serious: Yes (Other)
  Sender: FDA-Public Use
  Company Number: CA-JNJFOC-20231170920

PATIENT
  Age: 42 Year
  Sex: Female

DRUGS (1)
  1. SIMPONI [Suspect]
     Active Substance: GOLIMUMAB
     Indication: Ankylosing spondylitis
     Route: 041
     Dates: start: 20231027

REACTIONS (9)
  - Tibia fracture [Not Recovered/Not Resolved]
  - Episcleritis [Recovered/Resolved]
  - Ear injury [Unknown]
  - Fall [Unknown]
  - Hand fracture [Recovering/Resolving]
  - Ankylosing spondylitis [Unknown]
  - Inflammation [Unknown]
  - Endometriosis [Unknown]
  - Influenza [Recovered/Resolved]

NARRATIVE: CASE EVENT DATE: 20231027
